FAERS Safety Report 10800859 (Version 3)
Quarter: 2016Q1

REPORT INFORMATION
  Report Type: Spontaneous
  Country: US (occurrence: US)
  Receive Date: 20150216
  Receipt Date: 20160217
  Transmission Date: 20160525
  Serious: No
  Sender: FDA-Public Use
  Company Number: US-ALLERGAN-1426331US

PATIENT
  Age: 74 Year
  Sex: Female

DRUGS (1)
  1. RESTASIS [Suspect]
     Active Substance: CYCLOSPORINE
     Indication: DRY EYE
     Dosage: UNK, SINGLE
     Route: 047
     Dates: start: 20141223, end: 20141223

REACTIONS (4)
  - Scleral hyperaemia [Unknown]
  - Skin hyperpigmentation [Unknown]
  - Ocular hyperaemia [Unknown]
  - Headache [Unknown]

NARRATIVE: CASE EVENT DATE: 20141224
